FAERS Safety Report 5757749-8 (Version None)
Quarter: 2008Q2

REPORT INFORMATION
  Report Type: 
  Country: None (occurrence: None)
  Receive Date: 20080529
  Receipt Date: 20080520
  Transmission Date: 20081010
  Serious: Yes (Life-Threatening, Hospitalization, Disabling, Other)
  Sender: FDA-Public Use
  Company Number: 2008JP001253

PATIENT
  Age: 36 Year
  Sex: Female
  Weight: 61 kg

DRUGS (16)
  1. TACROLIMUS [Suspect]
     Indication: LUPUS NEPHRITIS
     Dosage: 1 MG, /D, ORAL; 1.5 MG, /D, ORAL
     Route: 048
     Dates: start: 20070623, end: 20070824
  2. TACROLIMUS [Suspect]
     Indication: LUPUS NEPHRITIS
     Dosage: 1 MG, /D, ORAL; 1.5 MG, /D, ORAL
     Route: 048
     Dates: start: 20070825, end: 20080103
  3. PREDNISOLONE TAB [Concomitant]
  4. BUFFERIN TABLET [Concomitant]
  5. ALFAROL (ALFACALCIDOL) CAPSULES [Concomitant]
  6. PARIET (RABEPRAZOLE SODIUM) TABLET [Concomitant]
  7. LOXONIN (LOXOPROFEN SODIUM) TABLET [Concomitant]
  8. OPALMON (LIMAPROST) TABLET [Concomitant]
  9. CINAL (ASCORBIC ACID, CALCIUM PANTOTHENATE) TABLET [Concomitant]
  10. LOSARTAN POTASSIUM [Concomitant]
  11. LIPITOR [Concomitant]
  12. MAGLAX (MAGNESIUM OXIDE) TABLET [Concomitant]
  13. BONALON (ALENDRONIC ACID) TABLET [Concomitant]
  14. MOHRUS (KETOPROFEN) TAPE [Concomitant]
  15. SELBEX (TEPRENONE) CAPSULE [Concomitant]
  16. ISODINE (POVIDONE-IODINE) MOUTH WASH [Concomitant]

REACTIONS (7)
  - CELLULITIS [None]
  - CONVULSION [None]
  - ENTEROCOCCAL BACTERAEMIA [None]
  - HEPATIC ENCEPHALOPATHY [None]
  - HISTIOCYTOSIS HAEMATOPHAGIC [None]
  - LOSS OF CONSCIOUSNESS [None]
  - STAPHYLOCOCCAL BACTERAEMIA [None]
